FAERS Safety Report 18379094 (Version 1)
Quarter: 2020Q4

REPORT INFORMATION
  Report Type: Report from Study
  Country: None (occurrence: US)
  Receive Date: 20201014
  Receipt Date: 20201014
  Transmission Date: 20210114
  Serious: Yes (Other)
  Sender: FDA-Public Use
  Company Number: US-ABBVIE-20K-163-3415678-00

PATIENT
  Age: 48 Year
  Sex: Female
  Weight: 101.7 kg

DRUGS (7)
  1. ALBUTEROL. [Concomitant]
     Active Substance: ALBUTEROL
     Indication: ASTHMA
  2. HUMIRA [Suspect]
     Active Substance: ADALIMUMAB
     Indication: HIDRADENITIS
     Route: 058
     Dates: start: 201802, end: 202001
  3. HUMIRA [Suspect]
     Active Substance: ADALIMUMAB
     Route: 058
     Dates: start: 202002, end: 202005
  4. BREO ELLIPTA [Concomitant]
     Active Substance: FLUTICASONE FUROATE\VILANTEROL TRIFENATATE
     Indication: ASTHMA
  5. SINGULAIR [Concomitant]
     Active Substance: MONTELUKAST SODIUM
     Indication: ASTHMA
  6. HUMIRA [Suspect]
     Active Substance: ADALIMUMAB
     Route: 058
     Dates: start: 202006
  7. SPIRIVA [Concomitant]
     Active Substance: TIOTROPIUM BROMIDE MONOHYDRATE
     Indication: ASTHMA

REACTIONS (11)
  - Back pain [Recovering/Resolving]
  - Peripheral swelling [Recovering/Resolving]
  - Gait disturbance [Recovering/Resolving]
  - Pain in extremity [Recovering/Resolving]
  - Intervertebral disc degeneration [Recovering/Resolving]
  - Hidradenitis [Unknown]
  - Chondropathy [Recovered/Resolved]
  - Exostosis [Recovered/Resolved]
  - Foot operation [Unknown]
  - Neuralgia [Recovering/Resolving]
  - Back pain [Recovered/Resolved]

NARRATIVE: CASE EVENT DATE: 201812
